FAERS Safety Report 5932803-6 (Version None)
Quarter: 2008Q4

REPORT INFORMATION
  Report Type: 
  Country: None (occurrence: None)
  Receive Date: 20081028
  Receipt Date: 20081024
  Transmission Date: 20090506
  Serious: Yes (Other)
  Sender: FDA-Public Use
  Company Number: B0543385A

PATIENT
  Sex: Female

DRUGS (2)
  1. ZANTAC [Suspect]
     Indication: PREMEDICATION
     Dosage: 50MG PER DAY
  2. RESTAMIN [Concomitant]
     Route: 048

REACTIONS (2)
  - INTERSTITIAL LUNG DISEASE [None]
  - SHOCK [None]
